FAERS Safety Report 18059146 (Version 4)
Quarter: 2020Q3

REPORT INFORMATION
  Report Type: Spontaneous
  Country: SE (occurrence: SE)
  Receive Date: 20200723
  Receipt Date: 20200930
  Transmission Date: 20201103
  Serious: Yes (Life-Threatening, Hospitalization, Other)
  Sender: FDA-Public Use
  Company Number: SE-MYLANLABS-2020M1066444

PATIENT
  Age: 46 Year
  Sex: Female

DRUGS (3)
  1. DOLCONTIN                          /00036302/ [Suspect]
     Active Substance: MORPHINE
     Indication: PRODUCT USED FOR UNKNOWN INDICATION
     Dosage: UNK (50?60 TABLETS OF 100 AND 200 MG, STRENGTH 100 MG)
     Route: 048
  2. DOLCONTIN                          /00036302/ [Suspect]
     Active Substance: MORPHINE
     Indication: PRODUCT USED FOR UNKNOWN INDICATION
     Dosage: UNK (50?60 TABLETS OF 100 AND 200 MG, STRENGTH 200 MG)
     Route: 048
  3. MORPHINE [Suspect]
     Active Substance: MORPHINE
     Indication: PRODUCT USED FOR UNKNOWN INDICATION
     Dosage: UNK (SOME IMMEDIATE?RELEASE MORPHINE TABLETS OF 10 MG)
     Route: 048

REACTIONS (3)
  - Toxicity to various agents [Recovering/Resolving]
  - Intentional overdose [Unknown]
  - Constipation [Recovering/Resolving]
